FAERS Safety Report 20905136 (Version 1)
Quarter: 2022Q2

REPORT INFORMATION
  Report Type: Spontaneous
  Country: CA (occurrence: CA)
  Receive Date: 20220602
  Receipt Date: 20220602
  Transmission Date: 20220721
  Serious: Yes (Life-Threatening, Hospitalization, Other)
  Sender: FDA-Public Use
  Company Number: None

PATIENT
  Age: 14 Year
  Sex: Male
  Weight: 42 kg

DRUGS (34)
  1. CARBOPLATIN [Suspect]
     Active Substance: CARBOPLATIN
     Indication: Burkitt^s lymphoma recurrent
     Route: 041
  2. ETOPOSIDE [Suspect]
     Active Substance: ETOPOSIDE
     Indication: Burkitt^s lymphoma recurrent
     Route: 041
  3. METHOTREXATE [Suspect]
     Active Substance: METHOTREXATE
     Indication: Burkitt^s lymphoma recurrent
  4. IFOSFAMIDE [Suspect]
     Active Substance: IFOSFAMIDE
     Indication: Burkitt^s lymphoma recurrent
     Dosage: INJECTION
     Route: 041
  5. VINCRISTINE SULFATE [Suspect]
     Active Substance: VINCRISTINE SULFATE
     Indication: Burkitt^s lymphoma recurrent
     Route: 041
  6. CYCLOPHOSPHAMIDE [Suspect]
     Active Substance: CYCLOPHOSPHAMIDE
     Indication: Burkitt^s lymphoma recurrent
     Route: 041
  7. CYTARABINE [Suspect]
     Active Substance: CYTARABINE
     Indication: Burkitt^s lymphoma recurrent
     Route: 037
  8. RITUXAN [Suspect]
     Active Substance: RITUXIMAB
     Indication: Burkitt^s lymphoma recurrent
     Route: 042
  9. ACYCLOVIR [Concomitant]
     Active Substance: ACYCLOVIR
  10. ALLOPURINOL [Concomitant]
     Active Substance: ALLOPURINOL
  11. CALCIUM\VITAMIN D [Concomitant]
     Active Substance: CALCIUM\VITAMIN D
  12. CEFOTAXIME [Concomitant]
     Active Substance: CEFOTAXIME SODIUM
  13. CHOLECALCIFEROL [Concomitant]
     Active Substance: CHOLECALCIFEROL
  14. FAMOTIDINE [Concomitant]
     Active Substance: FAMOTIDINE
  15. FASTURTEC [Concomitant]
     Active Substance: RASBURICASE
     Route: 042
  16. FLUCONAZOLE [Concomitant]
     Active Substance: FLUCONAZOLE
  17. HYDROCORTISONE [Concomitant]
     Active Substance: HYDROCORTISONE
     Route: 030
  18. HYDROMORPHONE [Concomitant]
     Active Substance: HYDROMORPHONE
  19. LEVETIRACETAM [Concomitant]
     Active Substance: LEVETIRACETAM
     Route: 065
  20. LEVOFLOXACIN [Concomitant]
     Active Substance: LEVOFLOXACIN
  21. MAGNESIUM [Concomitant]
     Active Substance: MAGNESIUM
  22. MEROPENEM [Concomitant]
     Active Substance: MEROPENEM
     Route: 042
  23. METHYLPREDNISOLONE [Concomitant]
     Active Substance: METHYLPREDNISOLONE
  24. MIDAZOLAM [Concomitant]
     Active Substance: MIDAZOLAM
     Route: 030
  25. MYCAMINE [Concomitant]
     Active Substance: MICAFUNGIN SODIUM
     Route: 042
  26. OLANZAPINE [Concomitant]
     Active Substance: OLANZAPINE
  27. ONDANSETRON [Concomitant]
     Active Substance: ONDANSETRON
  28. PHYTONADIONE [Concomitant]
     Active Substance: PHYTONADIONE
  29. PIPERACILLIN AND TAZOBACTAM [Concomitant]
     Active Substance: PIPERACILLIN SODIUM\TAZOBACTAM SODIUM
  30. POLYETHYLENE GLYCOL [Concomitant]
     Active Substance: POLYETHYLENE GLYCOL
  31. POTASSIUM [Concomitant]
     Active Substance: POTASSIUM
  32. SULFAMETHOXAZOLE\TRIMETHOPRIM [Concomitant]
     Active Substance: SULFAMETHOXAZOLE\TRIMETHOPRIM
  33. VALACYCLOVIR HYDROCHLORIDE [Concomitant]
     Active Substance: VALACYCLOVIR HYDROCHLORIDE
  34. VANCOMYCIN [Concomitant]
     Active Substance: VANCOMYCIN

REACTIONS (2)
  - Aplastic anaemia [Not Recovered/Not Resolved]
  - Off label use [Unknown]
